FAERS Safety Report 15481900 (Version 1)
Quarter: 2018Q4

REPORT INFORMATION
  Report Type: Report from Study
  Country: UG (occurrence: UG)
  Receive Date: 20181010
  Receipt Date: 20181010
  Transmission Date: 20190205
  Serious: Yes (Congenital Anomaly)
  Sender: FDA-Public Use
  Company Number: UG-VIIV HEALTHCARE LIMITED-UG2018GSK177783

PATIENT
  Age: 0 Day
  Sex: Male
  Weight: 3.5 kg

DRUGS (1)
  1. DOLUTEGRAVIR [Suspect]
     Active Substance: DOLUTEGRAVIR
     Indication: HIV INFECTION
     Dosage: 50 MG, QD
     Route: 064
     Dates: start: 20180419

REACTIONS (2)
  - Umbilical hernia [Unknown]
  - Birth mark [Unknown]

NARRATIVE: CASE EVENT DATE: 20180628
